FAERS Safety Report 5533941-2 (Version None)
Quarter: 2007Q4

REPORT INFORMATION
  Report Type: 
  Country: None (occurrence: None)
  Receive Date: 20071129
  Receipt Date: 20071113
  Transmission Date: 20080405
  Serious: Yes (Hospitalization)
  Sender: FDA-Public Use
  Company Number: ADE2007-0053

PATIENT
  Age: 58 Year
  Sex: Male

DRUGS (5)
  1. DIDANOSINE [Suspect]
     Indication: HIV INFECTION
     Dosage: 200 MG; BID
  2. SIMVASTATIN [Suspect]
     Indication: HYPERCHOLESTEROLAEMIA
     Dosage: 200 MG, QD; ORAL
     Route: 048
  3. ZIDOVUDINE [Suspect]
     Indication: HIV INFECTION
     Dosage: 250 MG, BID; ORAL
     Route: 048
  4. NEVIRAPINE [Suspect]
     Indication: HIV INFECTION
     Dosage: 200 MG, BID; ORAL
     Route: 048
  5. CLARITHROMYCIN [Suspect]
     Indication: LOWER RESPIRATORY TRACT INFECTION
     Dosage: 500 MG, BID; ORAL
     Route: 048

REACTIONS (8)
  - ANXIETY [None]
  - DISTURBANCE IN ATTENTION [None]
  - HOMICIDAL IDEATION [None]
  - MENTAL DISORDER [None]
  - NERVOUS SYSTEM DISORDER [None]
  - PRESSURE OF SPEECH [None]
  - PSYCHOMOTOR HYPERACTIVITY [None]
  - SUICIDAL IDEATION [None]
